FAERS Safety Report 9669753 (Version 3)
Quarter: 2013Q4

REPORT INFORMATION
  Report Type: Spontaneous
  Country: US (occurrence: US)
  Receive Date: 20131105
  Receipt Date: 20131210
  Transmission Date: 20140711
  Serious: Yes (Other)
  Sender: FDA-Public Use
  Company Number: US-PFIZER INC-2013314171

PATIENT
  Sex: Female

DRUGS (2)
  1. CELEBREX [Suspect]
     Indication: ARTHRITIS
     Dosage: 200 MG
  2. CALAN [Suspect]
     Indication: MITRAL VALVE PROLAPSE
     Dosage: 80 MG

REACTIONS (2)
  - Breast cancer female [Unknown]
  - Malaise [Unknown]
